FAERS Safety Report 14851457 (Version 1)
Quarter: 2018Q2

REPORT INFORMATION
  Report Type: Spontaneous
  Country: FR (occurrence: FR)
  Receive Date: 20180507
  Receipt Date: 20180507
  Transmission Date: 20180711
  Serious: Yes (Other)
  Sender: FDA-Public Use
  Company Number: FR-MERCK KGAA-2047264

PATIENT
  Age: 73 Year
  Sex: Female

DRUGS (1)
  1. NOVOTHYROX [Suspect]
     Active Substance: LEVOTHYROXINE SODIUM
     Indication: PRODUCT USED FOR UNKNOWN INDICATION

REACTIONS (18)
  - Feeling drunk [None]
  - Glycosylated haemoglobin increased [Recovering/Resolving]
  - Albumin urine present [None]
  - Housebound [None]
  - Dizziness [None]
  - Autonomic nervous system imbalance [None]
  - Vertigo [None]
  - Fear of falling [None]
  - Pain in extremity [None]
  - Irritability [None]
  - Myalgia [None]
  - Decreased activity [None]
  - Blood glucose increased [Recovering/Resolving]
  - Blood triglycerides increased [None]
  - Abdominal pain [None]
  - Muscle spasms [None]
  - Diarrhoea [None]
  - High density lipoprotein decreased [None]

NARRATIVE: CASE EVENT DATE: 20170213
